FAERS Safety Report 8596939-6 (Version None)
Quarter: 2012Q3

REPORT INFORMATION
  Report Type: 
  Country: None (occurrence: None)
  Receive Date: 20120815
  Receipt Date: 20120803
  Transmission Date: 20120928
  Serious: Yes (Life-Threatening, Other)
  Sender: FDA-Public Use
  Company Number: RU-AMGEN-UK251834

PATIENT
  Age: 65 Year
  Sex: Female

DRUGS (8)
  1. VITAMIN B COMPLEX CAP [Concomitant]
     Dosage: UNK UNK, UNK
     Dates: start: 20050701
  2. MELOXICAM [Concomitant]
     Dosage: 7.5 MG, QD
     Route: 065
     Dates: start: 20070801
  3. TRIMETAZIDINE [Concomitant]
     Dosage: 6 MG, BID
     Route: 065
  4. CINACALCET HYDROCHLORIDE [Suspect]
     Indication: HYPERPARATHYROIDISM SECONDARY
     Dosage: UNK UNK, QD
     Route: 048
     Dates: start: 20070727
  5. SIMVASTATIN [Concomitant]
     Dosage: 10 MG, QD
     Route: 065
  6. OMEPRAZOLE [Concomitant]
     Dosage: 20 MG, QD
     Route: 065
     Dates: start: 20070601
  7. VERAPAMIL [Concomitant]
     Dosage: UNK UNK, UNK
     Route: 048
     Dates: start: 20051001
  8. ASPIRIN [Concomitant]
     Dosage: 160 MG, QD
     Route: 065
     Dates: start: 20061001

REACTIONS (4)
  - ATRIAL FLUTTER [None]
  - PALPITATIONS [None]
  - ATRIAL FIBRILLATION [None]
  - HYPOTENSION [None]
